FAERS Safety Report 15370355 (Version 5)
Quarter: 2020Q1

REPORT INFORMATION
  Report Type: Spontaneous
  Country: US (occurrence: US)
  Receive Date: 20180911
  Receipt Date: 20200228
  Transmission Date: 20200409
  Serious: Yes (Death, Hospitalization, Other)
  Sender: FDA-Public Use
  Company Number: US-SA-2018SA250350

PATIENT
  Age: 83 Year
  Sex: Male

DRUGS (1)
  1. DUPIXENT [Suspect]
     Active Substance: DUPILUMAB
     Indication: DERMATITIS ATOPIC
     Dosage: 300 MG, QOW
     Route: 058
     Dates: start: 20180410

REACTIONS (6)
  - Erythema [Not Recovered/Not Resolved]
  - Death [Fatal]
  - Fatigue [Recovering/Resolving]
  - Skin cancer [Recovering/Resolving]
  - Pruritus [Not Recovered/Not Resolved]
  - Cardiac pacemaker evaluation [Unknown]

NARRATIVE: CASE EVENT DATE: 20180919
